FAERS Safety Report 5097893-4 (Version None)
Quarter: 2006Q3

REPORT INFORMATION
  Report Type: 
  Country: None (occurrence: None)
  Receive Date: 20060905
  Receipt Date: 20060905
  Transmission Date: 20061208
  Serious: Yes (Hospitalization)
  Sender: FDA-Public Use
  Company Number: None

PATIENT
  Age: 73 Year
  Sex: Male

DRUGS (16)
  1. CLOPIDOGREL BISULFATE 75 MG 75 MG [Suspect]
     Indication: CEREBROVASCULAR ACCIDENT PROPHYLAXIS
     Dosage: 75 MG DAILY PO
     Route: 048
     Dates: start: 20050201, end: 20060628
  2. ETODOLAC TAB 400 MG 400 MG [Suspect]
     Indication: OSTEOARTHRITIS
     Dosage: 400 MG 2X DAY PO
     Route: 048
     Dates: start: 20060201, end: 20060628
  3. ASPIRIN [Concomitant]
  4. CAPSAICIN [Concomitant]
  5. CLOBETASOL PROPRIONATE [Concomitant]
  6. CLOPIDOGREL BISULFATE [Concomitant]
  7. ETODOLAC [Concomitant]
  8. FERROUS SULFATE TAB [Concomitant]
  9. FINASTERIDE [Concomitant]
  10. GABAPENTIN [Concomitant]
  11. LISINOPRIL [Concomitant]
  12. MULTI-VITAMIN [Concomitant]
  13. NITROGLYCERIN [Concomitant]
  14. OMEPRAZOLE [Concomitant]
  15. SIMVASTATIN [Concomitant]
  16. ASPIRIN [Concomitant]

REACTIONS (7)
  - ASTHENIA [None]
  - FATIGUE [None]
  - GASTRITIS [None]
  - HAEMATOCHEZIA [None]
  - ROAD TRAFFIC ACCIDENT [None]
  - SYNCOPE [None]
  - UPPER GASTROINTESTINAL HAEMORRHAGE [None]
